FAERS Safety Report 5913054-8 (Version None)
Quarter: 2008Q4

REPORT INFORMATION
  Report Type: 
  Country: None (occurrence: None)
  Receive Date: 20081006
  Receipt Date: 20080923
  Transmission Date: 20090506
  Serious: Yes (Hospitalization)
  Sender: FDA-Public Use
  Company Number: 2006BI003819

PATIENT
  Age: 62 Year
  Sex: Female

DRUGS (12)
  1. AVONEX [Suspect]
     Indication: MULTIPLE SCLEROSIS
     Dosage: 30 UG; QW; IM, 30 UG; QW; IM, 30 UG; QW; IM,
     Route: 030
     Dates: start: 20011101, end: 20030801
  2. AVONEX [Suspect]
     Indication: MULTIPLE SCLEROSIS
     Dosage: 30 UG; QW; IM, 30 UG; QW; IM, 30 UG; QW; IM,
     Route: 030
     Dates: start: 20030801
  3. AVONEX [Suspect]
     Indication: MULTIPLE SCLEROSIS
     Dosage: 30 UG; QW; IM, 30 UG; QW; IM, 30 UG; QW; IM,
     Route: 030
     Dates: start: 20040101
  4. PROVIGIL (CON.) [Concomitant]
  5. FOSAMAX (CON.) [Concomitant]
  6. BENICAR (CON.) [Concomitant]
  7. BONIVA (CON.) [Concomitant]
  8. TARKA (CON.) [Concomitant]
  9. FLEXERIL (CON.) [Concomitant]
  10. IBUPROFEN (CON.) [Concomitant]
  11. METHYLPREDNISOLONE (CON.) [Concomitant]
  12. . [Concomitant]

REACTIONS (3)
  - CEREBRAL INFARCTION [None]
  - CEREBROVASCULAR ACCIDENT [None]
  - MULTIPLE SCLEROSIS [None]
